FAERS Safety Report 6184640-8 (Version None)
Quarter: 2009Q2

REPORT INFORMATION
  Report Type: 
  Country: None (occurrence: None)
  Receive Date: 20090508
  Receipt Date: 20090506
  Transmission Date: 20091009
  Serious: Yes (Hospitalization)
  Sender: FDA-Public Use
  Company Number: DE-ABBOTT-09P-062-0569695-00

PATIENT
  Sex: Female

DRUGS (3)
  1. HUMIRA [Suspect]
     Indication: RHEUMATOID ARTHRITIS
     Route: 058
     Dates: start: 20070810
  2. CORTISONE [Concomitant]
     Indication: RHEUMATOID ARTHRITIS
  3. SULFAZALASINE [Concomitant]
     Indication: RHEUMATOID ARTHRITIS

REACTIONS (4)
  - CONTUSION [None]
  - FACIAL BONES FRACTURE [None]
  - FALL [None]
  - SWELLING FACE [None]
